FAERS Safety Report 4509924-8 (Version None)
Quarter: 2004Q4

REPORT INFORMATION
  Report Type: 
  Country: None (occurrence: None)
  Receive Date: 20041124
  Receipt Date: 20041116
  Transmission Date: 20050328
  Serious: Yes (Hospitalization, Other)
  Sender: FDA-Public Use
  Company Number: FR-ABBOTT-04P-056-0280814-00

PATIENT
  Age: 68 Year
  Sex: Male

DRUGS (8)
  1. KALETRA [Suspect]
     Indication: HIV INFECTION
     Route: 048
     Dates: start: 20021201, end: 20030223
  2. KALETRA [Suspect]
     Dates: start: 20030101
  3. FLUCONAZOLE [Suspect]
     Indication: DRUG USE FOR UNKNOWN INDICATION
     Route: 048
     Dates: start: 20021201
  4. FLUCONAZOLE [Suspect]
  5. COMBIVIR [Suspect]
     Indication: HIV INFECTION
     Route: 048
     Dates: start: 20021201, end: 20030101
  6. COMBIVIR [Suspect]
     Route: 048
     Dates: start: 20030101, end: 20031223
  7. VIREAD [Suspect]
     Indication: HIV INFECTION
     Route: 048
     Dates: start: 20021201, end: 20030101
  8. VIREAD [Suspect]
     Route: 048
     Dates: start: 20030101, end: 20031223

REACTIONS (3)
  - ANGINA UNSTABLE [None]
  - CORONARY ARTERY STENOSIS [None]
  - TRANSIENT ISCHAEMIC ATTACK [None]
